FAERS Safety Report 7902704-2 (Version None)
Quarter: 2011Q4

REPORT INFORMATION
  Report Type: 
  Country: None (occurrence: None)
  Receive Date: 20111108
  Receipt Date: 20111102
  Transmission Date: 20120403
  Serious: Yes (Life-Threatening, Other)
  Sender: FDA-Public Use
  Company Number: US-ASTRAZENECA-2011SE66658

PATIENT
  Age: 79 Year
  Sex: Female

DRUGS (1)
  1. CRESTOR [Suspect]
     Route: 048

REACTIONS (3)
  - APPARENT DEATH [None]
  - MYOCARDIAL INFARCTION [None]
  - MEMORY IMPAIRMENT [None]
